FAERS Safety Report 5388070-8 (Version None)
Quarter: 2007Q3

REPORT INFORMATION
  Report Type: 
  Country: None (occurrence: None)
  Receive Date: 20070716
  Receipt Date: 20070712
  Transmission Date: 20080115
  Serious: Yes (Hospitalization)
  Sender: FDA-Public Use
  Company Number: CH-BRISTOL-MYERS SQUIBB COMPANY-13845565

PATIENT
  Age: 77 Year
  Sex: Female

DRUGS (2)
  1. METHOTREXATE [Suspect]
     Indication: POLYARTHRITIS
     Route: 048
     Dates: start: 20070301, end: 20070327
  2. PLAQUENIL [Suspect]
     Indication: POLYARTHRITIS
     Route: 048
     Dates: start: 20070301, end: 20070327

REACTIONS (5)
  - HEPATIC ENZYME INCREASED [None]
  - LARGE INTESTINAL ULCER [None]
  - PANCREATITIS [None]
  - PANCYTOPENIA [None]
  - RECTAL HAEMORRHAGE [None]
